FAERS Safety Report 13083649 (Version 1)
Quarter: 2017Q1

REPORT INFORMATION
  Report Type: Spontaneous
  Country: IT (occurrence: IT)
  Receive Date: 20170104
  Receipt Date: 20170104
  Transmission Date: 20170428
  Serious: Yes (Other)
  Sender: FDA-Public Use
  Company Number: IT-AUROBINDO-AUR-APL-2016-16069

PATIENT
  Age: 20 Year
  Sex: Female

DRUGS (1)
  1. IRBESARTAN. [Suspect]
     Active Substance: IRBESARTAN
     Indication: PRODUCT USED FOR UNKNOWN INDICATION
     Dosage: 1500 MG, UNK
     Dates: start: 20150723, end: 20150723

REACTIONS (2)
  - Drug abuse [Unknown]
  - Depressed mood [Unknown]

NARRATIVE: CASE EVENT DATE: 20150723
